FAERS Safety Report 14250506 (Version 1)
Quarter: 2017Q4

REPORT INFORMATION
  Report Type: Spontaneous
  Country: US (occurrence: US)
  Receive Date: 20171205
  Receipt Date: 20171205
  Transmission Date: 20180321
  Serious: Yes (Other)
  Sender: FDA-Public Use
  Company Number: US-ASTRAZENECA-2017SF20826

PATIENT
  Age: 84 Year
  Sex: Female

DRUGS (36)
  1. XGEVA [Concomitant]
     Active Substance: DENOSUMAB
     Indication: BONE CANCER
     Dosage: 1 INECTION EVERY 28 DAYS
     Route: 058
     Dates: start: 20160212
  2. XGEVA [Concomitant]
     Active Substance: DENOSUMAB
     Indication: METASTASES TO OVARY
     Dosage: 1 INECTION EVERY 28 DAYS
     Route: 058
     Dates: start: 20160212
  3. MULTIVITAMINS [Concomitant]
     Active Substance: VITAMINS
     Route: 048
  4. VITAMIN D3 [Concomitant]
     Active Substance: CHOLECALCIFEROL
     Dosage: 1000 UNIT
     Route: 048
  5. XGEVA [Concomitant]
     Active Substance: DENOSUMAB
     Indication: BONE CANCER
     Dosage: 1 INECTION EVERY 28 DAYS
     Route: 058
     Dates: start: 20130502, end: 20170630
  6. XGEVA [Concomitant]
     Active Substance: DENOSUMAB
     Indication: METASTASES TO OVARY
     Dosage: 1 INECTION EVERY 28 DAYS
     Route: 058
     Dates: start: 20130502, end: 20170630
  7. LETROZOLE. [Concomitant]
     Active Substance: LETROZOLE
     Dates: start: 20160224, end: 20170409
  8. TRAMADOL HYDROCHLORIDE. [Concomitant]
     Active Substance: TRAMADOL HYDROCHLORIDE
     Indication: PAIN
     Dosage: ONE TABLET EVERY EIGHT HOURS AS NEEEDED
     Route: 048
  9. XGEVA [Concomitant]
     Active Substance: DENOSUMAB
     Indication: BREAST CANCER FEMALE
     Dosage: 1 INJECTION EVERY 28 DAYS
     Route: 058
     Dates: start: 20120607, end: 20130418
  10. XGEVA [Concomitant]
     Active Substance: DENOSUMAB
     Indication: BREAST CANCER FEMALE
     Dosage: 1 INECTION EVERY 28 DAYS
     Route: 058
     Dates: start: 20160212
  11. INFLUENZA VACCINE [Concomitant]
     Active Substance: INFLUENZA VIRUS VACCINE
     Indication: BREAST CANCER FEMALE
     Dates: start: 20131114, end: 20131114
  12. CALCIUM [Concomitant]
     Active Substance: CALCIUM
  13. NORCO [Concomitant]
     Active Substance: ACETAMINOPHEN\HYDROCODONE BITARTRATE
     Indication: PAIN
     Dosage: 5/325 MG ONE TABLET EVERY SIX HOURS AS NEEDED
  14. IBRANCE [Suspect]
     Active Substance: PALBOCICLIB
     Route: 048
     Dates: start: 20160224, end: 20170409
  15. INFLUENZA VACCINE [Concomitant]
     Active Substance: INFLUENZA VIRUS VACCINE
     Indication: BREAST CANCER FEMALE
     Dates: start: 20141111, end: 20141111
  16. GABAPENTIN. [Concomitant]
     Active Substance: GABAPENTIN
  17. LEVOTHYROXINE. [Concomitant]
     Active Substance: LEVOTHYROXINE
     Route: 048
  18. TYLENOL [Concomitant]
     Active Substance: ACETAMINOPHEN
     Indication: PAIN
     Dosage: 1-2 TABLET EVERY SIX HOURS
     Route: 048
  19. FASLODEX [Suspect]
     Active Substance: FULVESTRANT
     Indication: BREAST CANCER FEMALE
     Route: 030
     Dates: start: 20170428
  20. XGEVA [Concomitant]
     Active Substance: DENOSUMAB
     Indication: METASTASES TO OVARY
     Dosage: 1 INJECTION EVERY 28 DAYS
     Route: 058
     Dates: start: 20120607, end: 20130418
  21. MIRTAZAPINE. [Concomitant]
     Active Substance: MIRTAZAPINE
     Route: 048
  22. FASLODEX [Suspect]
     Active Substance: FULVESTRANT
     Indication: BREAST CANCER FEMALE
     Route: 030
     Dates: start: 20120524, end: 20130503
  23. IBRANCE [Suspect]
     Active Substance: PALBOCICLIB
     Route: 048
     Dates: start: 20170428
  24. XGEVA [Concomitant]
     Active Substance: DENOSUMAB
     Indication: BREAST CANCER FEMALE
     Dosage: 1 INJECTION EVERY 28 DAYS
     Route: 058
     Dates: start: 20120607, end: 20130418
  25. XGEVA [Concomitant]
     Active Substance: DENOSUMAB
     Indication: BONE CANCER
     Dosage: 1 INJECTION EVERY 28 DAYS
     Route: 058
     Dates: start: 20120607, end: 20130418
  26. FASLODEX [Suspect]
     Active Substance: FULVESTRANT
     Indication: BREAST CANCER FEMALE
     Route: 030
     Dates: start: 20130530, end: 20160116
  27. PREVNAR [Suspect]
     Active Substance: PNEUMOCOCCAL 7-VALENT CONJUGATE VACCINE (DIPHTHERIA CRM197 PROTEIN)
     Dates: start: 20151218, end: 20151218
  28. XGEVA [Concomitant]
     Active Substance: DENOSUMAB
     Indication: BREAST CANCER FEMALE
     Dosage: 1 INECTION EVERY 28 DAYS
     Route: 058
     Dates: start: 20130502, end: 20170630
  29. XGEVA [Concomitant]
     Active Substance: DENOSUMAB
     Indication: BREAST CANCER FEMALE
     Dosage: 1 INECTION EVERY 28 DAYS
     Route: 058
     Dates: start: 20130502, end: 20170630
  30. INFLUENZA VACCINE [Concomitant]
     Active Substance: INFLUENZA VIRUS VACCINE
     Indication: BREAST CANCER FEMALE
     Dates: start: 20171018, end: 20171018
  31. LEVOTHYROXINE. [Concomitant]
     Active Substance: LEVOTHYROXINE
     Route: 048
  32. LOSARTAN. [Concomitant]
     Active Substance: LOSARTAN
     Route: 048
  33. TYLENOL [Concomitant]
     Active Substance: ACETAMINOPHEN
     Indication: PAIN
     Route: 048
  34. ZOTRAN [Concomitant]
     Active Substance: ALPRAZOLAM
     Indication: NAUSEA
     Dosage: EVERY SIX HOURS AS NEEDED
  35. XGEVA [Concomitant]
     Active Substance: DENOSUMAB
     Indication: BREAST CANCER FEMALE
     Dosage: 1 INECTION EVERY 28 DAYS
     Route: 058
     Dates: start: 20160212
  36. INFLUENZA VACCINE [Concomitant]
     Active Substance: INFLUENZA VIRUS VACCINE
     Indication: BREAST CANCER FEMALE
     Dates: start: 20121024, end: 20121024

REACTIONS (4)
  - Malignant neoplasm progression [Unknown]
  - Spinal pain [Unknown]
  - Arthralgia [Recovered/Resolved]
  - Rectal haemorrhage [Recovered/Resolved]

NARRATIVE: CASE EVENT DATE: 20140814
